FAERS Safety Report 9613695 (Version 1)
Quarter: 2013Q4

REPORT INFORMATION
  Report Type: Spontaneous
  Country: US (occurrence: US)
  Receive Date: 20131010
  Receipt Date: 20131010
  Transmission Date: 20140711
  Serious: Yes (Other)
  Sender: FDA-Public Use
  Company Number: US-BAXTER-2013BAX039018

PATIENT
  Age: 83 Year
  Sex: Female

DRUGS (6)
  1. CEFTRIAXONE INJECTION, USP (IN DEXTROSE) [Suspect]
     Indication: ENCEPHALITIS
     Route: 065
  2. VANCOMYCIN INJECTION, USP [Suspect]
     Indication: ENCEPHALITIS
     Route: 065
  3. AMPICILLIN [Suspect]
     Indication: ENCEPHALITIS
     Route: 065
  4. ACYCLOVIR [Suspect]
     Indication: ENCEPHALITIS
     Route: 065
  5. FLUVIRIN [Concomitant]
     Indication: IMMUNISATION
     Route: 030
  6. METHYLPREDNISOLONE [Concomitant]
     Indication: PRODUCT USED FOR UNKNOWN INDICATION
     Route: 042

REACTIONS (3)
  - Mental impairment [Recovering/Resolving]
  - Condition aggravated [Recovering/Resolving]
  - Respiratory failure [Recovered/Resolved]
